FAERS Safety Report 14626794 (Version 3)
Quarter: 2018Q2

REPORT INFORMATION
  Report Type: Report from Study
  Country: US (occurrence: US)
  Receive Date: 20180312
  Receipt Date: 20180409
  Transmission Date: 20180711
  Serious: Yes (Hospitalization, Other)
  Sender: FDA-Public Use
  Company Number: US-PFIZER INC-2018055266

PATIENT
  Age: 14 Year
  Sex: Male
  Weight: 74 kg

DRUGS (8)
  1. IRINOTECAN HCL [Suspect]
     Active Substance: IRINOTECAN HYDROCHLORIDE
     Dosage: 80 MG (40MG/M2/DOSE), CYCLIC (ONCE DAILY FOR 5 DOSES (DAYS 2-6))
     Route: 042
     Dates: start: 20171121, end: 20171125
  2. TALAZOPARIB [Suspect]
     Active Substance: TALAZOPARIB
     Dosage: 1000 UG, 600 MCG/M2, BID, DAY 1 (MAX 500 MCG/DOSE), THEN 600 MCG/M2 DAILY FOR DAYS 2-6 EVERY 3 WEEKS
     Route: 048
     Dates: start: 20171120, end: 20171125
  3. TALAZOPARIB [Suspect]
     Active Substance: TALAZOPARIB
     Indication: EWING^S SARCOMA
     Dosage: 1000 UG, 600 MCG/M2, BID, DAY 1 (MAX 500 MCG/DOSE), THEN 600 MCG/M2 DAILY FOR DAYS 2-6 EVERY 3 WEEKS
     Route: 048
     Dates: start: 20170823
  4. PEGFILGRASTIM [Concomitant]
     Active Substance: PEGFILGRASTIM
     Dosage: 1 DF 100 MCG/KG (WEIGHT LESS THAN 45 KG) OR 6 MG (WEIGHT MORE THAN 45 KG) ONE INJECTION 24-36 HOURS
     Dates: start: 20170823, end: 20170828
  5. TEMOZOLOMIDE. [Suspect]
     Active Substance: TEMOZOLOMIDE
     Dosage: 30 MG, CYCLIC (15 MG/M2/DOSE ONCE DAILY FOR 5 DOSES (DAYS 2-6))
     Route: 048
     Dates: start: 20171121, end: 20171125
  6. IRINOTECAN HCL [Suspect]
     Active Substance: IRINOTECAN HYDROCHLORIDE
     Indication: EWING^S SARCOMA
     Dosage: 80 MG, CYCLIC
     Route: 042
     Dates: start: 20170824, end: 20170828
  7. TEMOZOLOMIDE. [Suspect]
     Active Substance: TEMOZOLOMIDE
     Indication: EWING^S SARCOMA
     Dosage: 30 MG, DAILY
     Route: 048
     Dates: start: 20170824, end: 20170828
  8. PEGFILGRASTIM [Concomitant]
     Active Substance: PEGFILGRASTIM
     Dosage: 1 DF 100 MCG/KG (WEIGHT LESS THAN 45 KG) OR 6 MG (WEIGHT MORE THAN 45 KG) ONE INJECTION 24-36 HOURS
     Dates: start: 20171120, end: 20171125

REACTIONS (6)
  - Oropharyngeal pain [Unknown]
  - Colitis [Recovered/Resolved]
  - Febrile neutropenia [Recovered/Resolved]
  - Thrombocytopenia [Recovered/Resolved]
  - Enterocolitis [Unknown]
  - White blood cell count decreased [Unknown]

NARRATIVE: CASE EVENT DATE: 20170905
